FAERS Safety Report 4454720-3 (Version None)
Quarter: 2004Q3

REPORT INFORMATION
  Report Type: 
  Country: None (occurrence: None)
  Receive Date: 20040920
  Receipt Date: 20040920
  Transmission Date: 20050211
  Serious: Yes (Life-Threatening, Hospitalization)
  Sender: FDA-Public Use
  Company Number: None

PATIENT
  Sex: Male
  Weight: 88.4514 kg

DRUGS (1)
  1. ATROPINE [Suspect]
     Indication: SYNCOPE VASOVAGAL
     Dosage: 0.4 MG ONE DOSE INTRAVENOUS
     Route: 042

REACTIONS (1)
  - ATRIAL FIBRILLATION [None]
